FAERS Safety Report 6150647-X (Version None)
Quarter: 2009Q2

REPORT INFORMATION
  Report Type: 
  Country: None (occurrence: None)
  Receive Date: 20090408
  Receipt Date: 20090408
  Transmission Date: 20091009
  Serious: No
  Sender: FDA-Public Use
  Company Number: None

PATIENT
  Age: 57 Year
  Sex: Female
  Weight: 53.978 kg

DRUGS (1)
  1. BONIVA [Suspect]
     Indication: OSTEOPENIA
     Dosage: ONE TABLET A MONTH PO. DID NOT TAKE EVERY MONTH
     Route: 048
     Dates: start: 20080301, end: 20081101

REACTIONS (4)
  - ARTHROPATHY [None]
  - BONE DISORDER [None]
  - JOINT RANGE OF MOTION DECREASED [None]
  - SENSORY DISTURBANCE [None]
